FAERS Safety Report 4877667-7 (Version None)
Quarter: 2006Q1

REPORT INFORMATION
  Report Type: 
  Country: None (occurrence: None)
  Receive Date: 20060109
  Receipt Date: 20051227
  Transmission Date: 20060701
  Serious: Yes (Hospitalization)
  Sender: FDA-Public Use
  Company Number: 2005119106

PATIENT
  Age: 58 Year
  Sex: Male

DRUGS (6)
  1. FOSPHENYTOIN SODIUM [Suspect]
     Indication: CONVULSION
     Dosage: INTRAVENOUS
     Route: 042
     Dates: start: 20050628, end: 20050629
  2. DILANTIN [Suspect]
     Indication: CONVULSION
     Dosage: INTRAVENOUS
     Route: 042
     Dates: start: 20050628
  3. KEPPRA [Suspect]
     Indication: CONVULSION
     Dosage: (500 MG, 2 IN 1 D), ORAL
     Route: 048
     Dates: start: 20050616, end: 20050705
  4. ZANTAC [Concomitant]
  5. DEXAMETHASONE [Concomitant]
  6. DOCUSATE (DOCUSATE) [Concomitant]

REACTIONS (9)
  - FATIGUE [None]
  - HAEMATOCRIT DECREASED [None]
  - HAEMOGLOBIN DECREASED [None]
  - HEPATIC FAILURE [None]
  - HEPATIC NECROSIS [None]
  - LETHARGY [None]
  - THROMBOCYTOPENIA [None]
  - WHITE BLOOD CELL COUNT DECREASED [None]
  - WHITE BLOOD CELL COUNT INCREASED [None]
